FAERS Safety Report 20895112 (Version 1)
Quarter: 2022Q2

REPORT INFORMATION
  Report Type: Report from Study
  Country: US (occurrence: US)
  Receive Date: 20220531
  Receipt Date: 20220531
  Transmission Date: 20220721
  Serious: Yes (Other)
  Sender: FDA-Public Use
  Company Number: US-BRISTOL-MYERS SQUIBB COMPANY-2022-044722

PATIENT
  Age: 48 Year
  Sex: Female
  Weight: 49.8 kg

DRUGS (1)
  1. REVLIMID [Suspect]
     Active Substance: LENALIDOMIDE
     Indication: Plasma cell myeloma
     Dosage: FOE 21 DAYS AND 7 DAYS OFF
     Route: 048
     Dates: start: 20200916

REACTIONS (2)
  - Rash [Unknown]
  - Eye swelling [Unknown]
